FAERS Safety Report 8233160-5 (Version None)
Quarter: 2012Q1

REPORT INFORMATION
  Report Type: 
  Country: None (occurrence: None)
  Receive Date: 20120326
  Receipt Date: 20120320
  Transmission Date: 20120608
  Serious: No
  Sender: FDA-Public Use
  Company Number: US-PFIZER INC-2012034775

PATIENT
  Age: 86 Year
  Sex: Female

DRUGS (1)
  1. ATORVASTATIN CALCIUM [Suspect]
     Dosage: 20 MG, AT NIGHT
     Dates: start: 20120106

REACTIONS (6)
  - ARTHRALGIA [None]
  - ABDOMINAL PAIN UPPER [None]
  - BACK PAIN [None]
  - NIGHT SWEATS [None]
  - PAIN IN EXTREMITY [None]
  - HEADACHE [None]
